FAERS Safety Report 25070345 (Version 1)
Quarter: 2025Q1

REPORT INFORMATION
  Report Type: Spontaneous
  Country: CN (occurrence: CN)
  Receive Date: 20250312
  Receipt Date: 20250312
  Transmission Date: 20250409
  Serious: Yes (Other)
  Sender: PFIZER
  Company Number: CN-PFIZER INC-PV202500029802

PATIENT
  Age: 83 Year
  Sex: Male
  Weight: 60 kg

DRUGS (1)
  1. VORICONAZOLE [Suspect]
     Active Substance: VORICONAZOLE
     Indication: Oral candidiasis
     Dosage: 200 MG, 2X/DAY
     Route: 048
     Dates: start: 20241217, end: 20241221

REACTIONS (4)
  - Psychiatric symptom [Unknown]
  - Delirium [Unknown]
  - Confusional state [Unknown]
  - Disorganised speech [Unknown]

NARRATIVE: CASE EVENT DATE: 20241221
